FAERS Safety Report 6629470-5 (Version None)
Quarter: 2010Q1

REPORT INFORMATION
  Report Type: 
  Country: None (occurrence: None)
  Receive Date: 20100311
  Receipt Date: 20090721
  Transmission Date: 20100710
  Serious: No
  Sender: FDA-Public Use
  Company Number: US-BIOGENIDEC-2009BI022461

PATIENT
  Sex: Female

DRUGS (2)
  1. AVONEX [Suspect]
     Indication: MULTIPLE SCLEROSIS
     Route: 030
     Dates: start: 19980101, end: 20080101
  2. AVONEX [Suspect]
     Route: 030
     Dates: start: 20080101

REACTIONS (7)
  - GAIT DISTURBANCE [None]
  - HEMIPARESIS [None]
  - INFLUENZA LIKE ILLNESS [None]
  - OSTEOPENIA [None]
  - OSTEOPOROSIS [None]
  - TRIGEMINAL NEURALGIA [None]
  - WHITE BLOOD CELL COUNT DECREASED [None]
